FAERS Safety Report 10138717 (Version 1)
Quarter: 2014Q2

REPORT INFORMATION
  Report Type: Spontaneous
  Country: DK (occurrence: FR)
  Receive Date: 20140429
  Receipt Date: 20140429
  Transmission Date: 20141212
  Serious: Yes (Other)
  Sender: FDA-Public Use
  Company Number: FR-FRI-1000066843

PATIENT
  Age: 59 Year
  Sex: Male

DRUGS (2)
  1. ESCITALOPRAM [Suspect]
     Indication: STRESS
     Dosage: 5 MG
     Route: 048
     Dates: start: 20140324
  2. NOVORAPID [Concomitant]
     Dosage: 5 MG

REACTIONS (1)
  - Blood glucose fluctuation [Not Recovered/Not Resolved]
